FAERS Safety Report 5565386-3 (Version None)
Quarter: 2007Q4

REPORT INFORMATION
  Report Type: 
  Country: None (occurrence: None)
  Receive Date: 20071218
  Receipt Date: 20071206
  Transmission Date: 20080405
  Serious: Yes (Hospitalization, Other)
  Sender: FDA-Public Use
  Company Number: FR-ELI_LILLY_AND_COMPANY-FR200712001091

PATIENT
  Sex: Male

DRUGS (9)
  1. PROZAC [Suspect]
     Dosage: 20 MG, DAILY (1/D)
     Route: 048
     Dates: start: 20071031
  2. KARDEGIC [Concomitant]
     Dosage: 75 MG, DAILY (1/D)
     Route: 048
     Dates: end: 20071101
  3. ACETAMINOPHEN [Concomitant]
     Dosage: 500 MG, OTHER
     Route: 048
     Dates: start: 20071031, end: 20071101
  4. LASIX [Concomitant]
     Dosage: 40 MG, DAILY (1/D)
     Route: 048
  5. SECTRAL [Concomitant]
     Dosage: 0.5 D/F, DAILY (1/D)
     Route: 048
  6. VASTAREL [Concomitant]
     Dosage: 2 D/F, DAILY (1/D)
     Route: 048
  7. MOTILIUM [Concomitant]
     Dosage: 10 MG, OTHER
     Route: 048
     Dates: start: 20071006, end: 20071101
  8. FORLAX [Concomitant]
     Dosage: 1 D/F, 2/D
     Route: 048
     Dates: end: 20071101
  9. TRIFLUCAN [Concomitant]
     Dosage: 0.5 D/F, DAILY (1/D)
     Route: 048
     Dates: start: 20071018, end: 20071102

REACTIONS (8)
  - BLOOD CREATININE INCREASED [None]
  - BLOOD UREA INCREASED [None]
  - COLITIS ISCHAEMIC [None]
  - COMMUNICATION DISORDER [None]
  - MOTOR DYSFUNCTION [None]
  - RECTAL HAEMORRHAGE [None]
  - WHITE BLOOD CELL COUNT INCREASED [None]
  - WOUND [None]
